FAERS Safety Report 20006002 (Version 1)
Quarter: 2021Q4

REPORT INFORMATION
  Report Type: Report from Study
  Country: FR (occurrence: FR)
  Receive Date: 20211027
  Receipt Date: 20211027
  Transmission Date: 20220304
  Serious: Yes (Death, Other)
  Sender: FDA-Public Use
  Company Number: FR-BAXTER-2021BAX033149

PATIENT

DRUGS (8)
  1. DOXORUBICIN HYDROCHLORIDE [Suspect]
     Active Substance: DOXORUBICIN HYDROCHLORIDE
     Indication: Metastatic gastric cancer
     Dosage: 1.5 MG/SQUARE METER BODY SURFACE (1ST PIPAC-C/D)
     Route: 033
  2. DOXORUBICIN HYDROCHLORIDE [Suspect]
     Active Substance: DOXORUBICIN HYDROCHLORIDE
     Dosage: 1.5 MG/SQUARE METER BODY SURFACE (2ND PIPAC-C/D)
     Route: 042
  3. SODIUM CHLORIDE [Suspect]
     Active Substance: SODIUM CHLORIDE
     Indication: Metastatic gastric cancer
     Dosage: (1ST PIPAC-C/D)
     Route: 033
  4. SODIUM CHLORIDE [Suspect]
     Active Substance: SODIUM CHLORIDE
     Dosage: (1ST PIPAC-C/D)
     Route: 033
  5. SODIUM CHLORIDE [Suspect]
     Active Substance: SODIUM CHLORIDE
     Dosage: (2ND PIPAC-C/D)
     Route: 033
  6. SODIUM CHLORIDE [Suspect]
     Active Substance: SODIUM CHLORIDE
     Dosage: (2ND PIPAC-C/D)
     Route: 033
  7. CISPLATIN [Suspect]
     Active Substance: CISPLATIN
     Indication: Metastatic gastric cancer
     Dosage: 7.5 MG/SQUARE METER BODY SURFACE (1ST PIPAC-C/D)
     Route: 033
  8. CISPLATIN [Suspect]
     Active Substance: CISPLATIN
     Dosage: 7.5 MG/SQUARE METER BODY SURFACE (2ND PIPAC-C/D)
     Route: 033

REACTIONS (1)
  - Cardiac failure [Fatal]
